FAERS Safety Report 25818399 (Version 1)
Quarter: 2025Q3

REPORT INFORMATION
  Report Type: Spontaneous
  Country: NI (occurrence: NI)
  Receive Date: 20250918
  Receipt Date: 20250918
  Transmission Date: 20251020
  Serious: Yes (Hospitalization, Other)
  Sender: ALEXION PHARMACEUTICALS
  Company Number: NI-ASTRAZENECA-202509GLO013577NI

PATIENT
  Age: 63 Year
  Sex: Female

DRUGS (1)
  1. OSIMERTINIB [Suspect]
     Active Substance: OSIMERTINIB
     Indication: EGFR gene mutation
     Dosage: 40 MILLIGRAM, QD
     Route: 065

REACTIONS (3)
  - Cardiotoxicity [Unknown]
  - Blood creatinine increased [Unknown]
  - Gastrointestinal toxicity [Unknown]
